FAERS Safety Report 7553144-X (Version None)
Quarter: 2011Q2

REPORT INFORMATION
  Report Type: 
  Country: None (occurrence: None)
  Receive Date: 20110616
  Receipt Date: 20110610
  Transmission Date: 20111010
  Serious: Yes (Death, Other)
  Sender: FDA-Public Use
  Company Number: US-TEVA-286316USA

PATIENT
  Sex: Female

DRUGS (2)
  1. INTERFERON BETA NOS [Suspect]
     Indication: MULTIPLE SCLEROSIS
     Dosage: 4.2857 MICROGRAM;
     Route: 030
     Dates: start: 20030107
  2. COPAXONE [Suspect]
     Indication: MULTIPLE SCLEROSIS
     Route: 058

REACTIONS (3)
  - MULTIPLE SCLEROSIS [None]
  - CARDIAC DISORDER [None]
  - CHEST PAIN [None]
